FAERS Safety Report 22620510 (Version 1)
Quarter: 2023Q2

REPORT INFORMATION
  Report Type: Report from Study
  Country: US (occurrence: US)
  Receive Date: 20230620
  Receipt Date: 20230620
  Transmission Date: 20230722
  Serious: Yes (Hospitalization)
  Sender: FDA-Public Use
  Company Number: US-MYLANLABS-2023M1063720

PATIENT
  Age: 47 Year
  Sex: Male

DRUGS (1)
  1. CLOZAPINE [Suspect]
     Active Substance: CLOZAPINE
     Indication: Product used for unknown indication
     Dosage: UNK
     Route: 065

REACTIONS (11)
  - Hospitalisation [Unknown]
  - Blood calcium decreased [Not Recovered/Not Resolved]
  - Protein total decreased [Unknown]
  - Red cell distribution width increased [Recovered/Resolved]
  - Blood phosphorus increased [Recovered/Resolved]
  - Anisocytosis [Unknown]
  - Blood thyroid stimulating hormone decreased [Unknown]
  - High density lipoprotein decreased [Unknown]
  - Haemoglobin decreased [Recovered/Resolved]
  - Haematocrit decreased [Recovered/Resolved]
  - Eosinophil count increased [Unknown]

NARRATIVE: CASE EVENT DATE: 20230502
